FAERS Safety Report 25103042 (Version 1)
Quarter: 2025Q1

REPORT INFORMATION
  Report Type: Spontaneous
  Country: JP (occurrence: JP)
  Receive Date: 20250321
  Receipt Date: 20250321
  Transmission Date: 20250409
  Serious: Yes (Death, Hospitalization, Other)
  Sender: MERCK SHARP & DOHME LLC
  Company Number: JP-MSD-M2021-17634

PATIENT
  Age: 74 Year
  Sex: Female
  Weight: 30 kg

DRUGS (9)
  1. NOXAFIL [Suspect]
     Active Substance: POSACONAZOLE
     Indication: Mucormycosis
  2. NOXAFIL [Suspect]
     Active Substance: POSACONAZOLE
     Indication: Mucormycosis
     Dosage: DOSE DESCRIPTION : 300 MILLIGRAM, BID?DAILY DOSE : 600 MILLIGRAM?REGIMEN DOSE : 600  MILLIGRAM
     Route: 048
     Dates: start: 20210629, end: 20210629
  3. NOXAFIL [Suspect]
     Active Substance: POSACONAZOLE
     Indication: Mucormycosis
     Dosage: DOSE DESCRIPTION : 300 MILLIGRAM, QD?DAILY DOSE : 300 MILLIGRAM?REGIMEN DOSE : 1800  MILLIGRAM
     Route: 048
     Dates: start: 20210630, end: 20210705
  4. ROSUVASTATIN CALCIUM [Interacting]
     Active Substance: ROSUVASTATIN CALCIUM
     Indication: Dyslipidaemia
     Dosage: DOSE DESCRIPTION : 5 MILLIGRAM, QD?DAILY DOSE : 5 MILLIGRAM?CONCENTRATION: 2.5 MILLIGRAM
     Route: 048
     Dates: end: 20210705
  5. AMBROXOL HYDROCHLORIDE [Concomitant]
     Active Substance: AMBROXOL HYDROCHLORIDE
     Route: 048
  6. CARBOCYSTEINE [Concomitant]
     Active Substance: CARBOCYSTEINE
     Route: 048
  7. AMBISOME [Concomitant]
     Active Substance: AMPHOTERICIN B
     Indication: Mucormycosis
     Route: 041
     Dates: start: 202106, end: 20210622
  8. AMBISOME [Concomitant]
     Active Substance: AMPHOTERICIN B
     Indication: Mucormycosis
     Route: 041
     Dates: start: 20210624, end: 20210628
  9. MAGNESIUM OXIDE [Concomitant]
     Active Substance: MAGNESIUM OXIDE
     Route: 048

REACTIONS (2)
  - Rhabdomyolysis [Fatal]
  - Drug interaction [Unknown]

NARRATIVE: CASE EVENT DATE: 20210706
